FAERS Safety Report 10367430 (Version 1)
Quarter: 2014Q3

REPORT INFORMATION
  Report Type: Spontaneous
  Country: DE (occurrence: None)
  Receive Date: 20140805
  Receipt Date: 20140805
  Transmission Date: 20150326
  Serious: No
  Sender: FDA-Public Use
  Company Number: DEU-SPN-2008005

PATIENT

DRUGS (1)
  1. CARBAGLU [Suspect]
     Active Substance: CARGLUMIC ACID
     Indication: HYPERAMMONAEMIA
     Route: 048

REACTIONS (6)
  - Infection [None]
  - Off label use [None]
  - Carbamoyl phosphate synthetase deficiency [None]
  - Disease progression [None]
  - Hyperammonaemia [None]
  - Metabolic disorder [None]
